FAERS Safety Report 5002866-3 (Version None)
Quarter: 2006Q2

REPORT INFORMATION
  Report Type: 
  Country: None (occurrence: None)
  Receive Date: 20060512
  Receipt Date: 20060426
  Transmission Date: 20061013
  Serious: Yes (Hospitalization)
  Sender: FDA-Public Use
  Company Number: AE200603006339

PATIENT
  Age: 23 Year
  Sex: Male
  Weight: 90 kg

DRUGS (3)
  1. ZYPREXA [Suspect]
     Dosage: 15 MG, DAILY (1/D)
  2. ARTANE [Concomitant]
  3. VITAMIN B COMPLEX (CALCIUM PANTOTHENATE, NICOTINAMIDE, PYRIDOXINE HYDR [Concomitant]

REACTIONS (3)
  - DRUG INTOLERANCE [None]
  - HYPOTENSION [None]
  - PNEUMONIA [None]
